FAERS Safety Report 5449785-6 (Version None)
Quarter: 2007Q3

REPORT INFORMATION
  Report Type: 
  Country: None (occurrence: None)
  Receive Date: 20070910
  Receipt Date: 20070828
  Transmission Date: 20080115
  Serious: Yes (Hospitalization)
  Sender: FDA-Public Use
  Company Number: S07-ITA-03742-01

PATIENT
  Age: 68 Year
  Sex: Female

DRUGS (7)
  1. CITALOPRAM HYDROBROMIDE [Suspect]
     Indication: DEPRESSION
     Dosage: 40 MG QD PO
     Route: 048
     Dates: start: 20070514, end: 20070629
  2. NIFEDIPINE [Concomitant]
  3. IBUSTRIN(INDOBUFEN SODIUM) [Concomitant]
  4. DELAPRIL/INDAPAMIDE (DELAPRIDE) [Concomitant]
  5. RISPERIDON (RISPERIDONE) [Concomitant]
  6. AKINETON [Concomitant]
  7. ALOPERIDOL (HALOPERIDOL) [Concomitant]

REACTIONS (4)
  - BLOOD POTASSIUM DECREASED [None]
  - BLOOD SODIUM DECREASED [None]
  - COMA [None]
  - ELECTROLYTE IMBALANCE [None]
